FAERS Safety Report 6220419-6 (Version None)
Quarter: 2009Q2

REPORT INFORMATION
  Report Type: 
  Country: None (occurrence: None)
  Receive Date: 20090610
  Receipt Date: 20090601
  Transmission Date: 20091009
  Serious: Yes (Other)
  Sender: FDA-Public Use
  Company Number: US-TEVA-192424USA

PATIENT
  Sex: Female

DRUGS (4)
  1. CLARAVIS [Suspect]
     Route: 048
     Dates: start: 20080623, end: 20081111
  2. CLARAVIS [Suspect]
     Route: 048
     Dates: start: 20090105, end: 20090302
  3. CLARAVIS [Suspect]
     Route: 048
     Dates: start: 20090401, end: 20090401
  4. ORAL CONTRACEPTIVE NOS [Concomitant]
     Indication: CONTRACEPTION
     Route: 048

REACTIONS (5)
  - ABORTION SPONTANEOUS [None]
  - ASPARTATE AMINOTRANSFERASE INCREASED [None]
  - MALAISE [None]
  - UNINTENDED PREGNANCY [None]
  - WHITE BLOOD CELL COUNT INCREASED [None]
